FAERS Safety Report 10068033 (Version 1)
Quarter: 2014Q2

REPORT INFORMATION
  Report Type: Spontaneous
  Country: US (occurrence: None)
  Receive Date: 20140409
  Receipt Date: 20140409
  Transmission Date: 20141212
  Serious: Yes (Other)
  Sender: FDA-Public Use
  Company Number: None

PATIENT
  Sex: Female
  Weight: 109.77 kg

DRUGS (1)
  1. PROGESTERONE [Suspect]
     Indication: REPRODUCTIVE TRACT DISORDER
     Dosage: 400 MG QHS PV
     Dates: start: 20130719, end: 201308

REACTIONS (2)
  - Product compounding quality issue [None]
  - Drug ineffective [None]
